FAERS Safety Report 18181589 (Version 1)
Quarter: 2020Q3

REPORT INFORMATION
  Report Type: Report from Study
  Country: IE (occurrence: IE)
  Receive Date: 20200821
  Receipt Date: 20200821
  Transmission Date: 20201103
  Serious: Yes (Hospitalization)
  Sender: FDA-Public Use
  Company Number: IE-IPSEN BIOPHARMACEUTICALS, INC.-2020-09490

PATIENT
  Age: 64 Year
  Sex: Female

DRUGS (11)
  1. LERCANIDIPINE [Concomitant]
     Active Substance: LERCANIDIPINE
     Route: 050
  2. EXETROL [Concomitant]
     Dosage: UNIT?10 MG
     Route: 050
  3. THYROXINE [Concomitant]
     Active Substance: LEVOTHYROXINE
     Dosage: DOSE? 100 MCG ON ALTERNATE DAYS
     Route: 050
  4. ESOMEPRAZOLE. [Concomitant]
     Active Substance: ESOMEPRAZOLE MAGNESIUM
     Route: 050
  5. ARCANE PLUS [Concomitant]
     Dosage: UNIT?16 MG
     Route: 050
  6. RAMIPRIL. [Concomitant]
     Active Substance: RAMIPRIL
     Route: 050
  7. SOMATULINE AUTOGEL [Suspect]
     Active Substance: LANREOTIDE ACETATE
     Indication: NEUROENDOCRINE TUMOUR
     Route: 058
     Dates: start: 20200428
  8. METFORMIN [Concomitant]
     Active Substance: METFORMIN HYDROCHLORIDE
     Route: 050
  9. ATORVASTATIN [Concomitant]
     Active Substance: ATORVASTATIN
     Dosage: UNIT?40 MG
     Route: 050
  10. BISOPROLOL [Concomitant]
     Active Substance: BISOPROLOL
     Dosage: UNIT ?2.5 MG
     Route: 050
  11. ASPIRIN. [Concomitant]
     Active Substance: ASPIRIN
     Route: 050

REACTIONS (11)
  - Influenza like illness [Not Recovered/Not Resolved]
  - Flatulence [Not Recovered/Not Resolved]
  - Muscle spasms [Recovered/Resolved]
  - Transient ischaemic attack [Recovered/Resolved]
  - Diarrhoea [Not Recovered/Not Resolved]
  - Headache [Recovered/Resolved]
  - Blood glucose increased [Not Recovered/Not Resolved]
  - Headache [Recovered/Resolved]
  - Chest pain [Not Recovered/Not Resolved]
  - Oral pain [Recovered/Resolved]
  - Flushing [Recovered/Resolved]

NARRATIVE: CASE EVENT DATE: 2020
